FAERS Safety Report 25746474 (Version 1)
Quarter: 2025Q3

REPORT INFORMATION
  Report Type: Spontaneous
  Country: EU (occurrence: EU)
  Receive Date: 20250901
  Receipt Date: 20250901
  Transmission Date: 20251021
  Serious: Yes (Life-Threatening, Other)
  Sender: AUROBINDO
  Company Number: EU-002147023-NVSC2024FR090205

PATIENT
  Age: 64 Year
  Sex: Female

DRUGS (1)
  1. DICLOFENAC [Suspect]
     Active Substance: DICLOFENAC
     Indication: Back pain
     Dosage: 4 DOSAGE FORM, ONCE A DAY [4 DOSAGE FORM, QD (2 DOSAGE FORM, BID (1 MORNING AND 1 EVENING, EVERY 1 D
     Route: 048
     Dates: start: 20240113, end: 20240113

REACTIONS (1)
  - Anaphylactic reaction [Recovered/Resolved]

NARRATIVE: CASE EVENT DATE: 20240114
